FAERS Safety Report 6054527-X (Version None)
Quarter: 2009Q1

REPORT INFORMATION
  Report Type: 
  Country: None (occurrence: None)
  Receive Date: 20090127
  Receipt Date: 20090120
  Transmission Date: 20090719
  Serious: Yes (Hospitalization)
  Sender: FDA-Public Use
  Company Number: PHHY2009CL02061

PATIENT
  Age: 71 Year
  Sex: Female

DRUGS (3)
  1. EXFORGE [Suspect]
     Indication: HYPERTENSION
     Dosage: 1 TABLET PER DAY
     Dates: start: 20081101
  2. LACTULOSE [Concomitant]
  3. OMEPRAZOLE [Concomitant]

REACTIONS (2)
  - HAEMORRHOID OPERATION [None]
  - HAEMORRHOIDS [None]
